FAERS Safety Report 5500100-9 (Version None)
Quarter: 2007Q4

REPORT INFORMATION
  Report Type: 
  Country: None (occurrence: None)
  Receive Date: 20071024
  Receipt Date: 20071015
  Transmission Date: 20080405
  Serious: Yes (Other)
  Sender: FDA-Public Use
  Company Number: 2007SP019900

PATIENT
  Sex: Male

DRUGS (12)
  1. NOXAFIL [Suspect]
     Indication: PROPHYLAXIS
     Dosage: 200 MG; QID; PO;  200 MG; TID; PO
     Route: 048
     Dates: start: 20060729, end: 20070522
  2. NOXAFIL [Suspect]
     Indication: PROPHYLAXIS
     Dosage: 200 MG; QID; PO;  200 MG; TID; PO
     Route: 048
     Dates: start: 20070523, end: 20070808
  3. KALIUM [Concomitant]
  4. NOVALGIN [Concomitant]
  5. CLEXANE [Concomitant]
  6. TAZOBACTAM [Concomitant]
  7. RAMIPRIL [Concomitant]
  8. ACIC [Concomitant]
  9. ACC [Concomitant]
  10. GELOMYRTOL FORTE [Concomitant]
  11. BELOK ZOK MITE [Concomitant]
  12. ITRACONAZOLE [Concomitant]

REACTIONS (4)
  - LEUKOCYTOCLASTIC VASCULITIS [None]
  - LUNG INFILTRATION [None]
  - STENOTROPHOMONAS SEPSIS [None]
  - THERAPEUTIC RESPONSE DECREASED [None]
